FAERS Safety Report 18745672 (Version 1)
Quarter: 2021Q1

REPORT INFORMATION
  Report Type: Spontaneous
  Country: US (occurrence: US)
  Receive Date: 20210114
  Receipt Date: 20210114
  Transmission Date: 20210419
  Serious: No
  Sender: FDA-Public Use
  Company Number: None

PATIENT
  Age: 72 Year
  Sex: Female
  Weight: 74.25 kg

DRUGS (8)
  1. ALPRAZOLAM 0.25MG [Concomitant]
     Active Substance: ALPRAZOLAM
  2. ANASTROZOLE. [Suspect]
     Active Substance: ANASTROZOLE
     Indication: PRODUCT USED FOR UNKNOWN INDICATION
     Route: 048
     Dates: start: 20180428
  3. ATORVASTATIN 20MG [Concomitant]
     Active Substance: ATORVASTATIN
  4. WELLBUTRIN SR [Concomitant]
     Active Substance: BUPROPION HYDROCHLORIDE
  5. LEVOTHYROXINE 150MCG [Concomitant]
     Active Substance: LEVOTHYROXINE
  6. ASPIRIN 81MG [Concomitant]
     Active Substance: ASPIRIN
  7. VENLAFAXINE ER 75MG [Concomitant]
     Active Substance: VENLAFAXINE HYDROCHLORIDE
  8. IBUPROFEN. [Concomitant]
     Active Substance: IBUPROFEN

REACTIONS (3)
  - Constipation [None]
  - Rhinorrhoea [None]
  - Feeling abnormal [None]

NARRATIVE: CASE EVENT DATE: 20210114
